FAERS Safety Report 9425004 (Version 4)
Quarter: 2013Q4

REPORT INFORMATION
  Report Type: Spontaneous
  Country: US (occurrence: US)
  Receive Date: 20130729
  Receipt Date: 20131030
  Transmission Date: 20140711
  Serious: No
  Sender: FDA-Public Use
  Company Number: US-PFIZER INC-2013219796

PATIENT
  Age: 45 Year
  Sex: Female
  Weight: 68.03 kg

DRUGS (1)
  1. LYRICA [Suspect]
     Indication: BURNING SENSATION
     Dosage: 100 MG, 3X/DAY
     Route: 048
     Dates: start: 201306

REACTIONS (5)
  - Burning sensation [Recovering/Resolving]
  - Fatigue [Not Recovered/Not Resolved]
  - Malaise [Unknown]
  - Weight increased [Unknown]
  - Nasopharyngitis [Unknown]
